FAERS Safety Report 19142297 (Version 1)
Quarter: 2021Q2

REPORT INFORMATION
  Report Type: Spontaneous
  Country: US (occurrence: US)
  Receive Date: 20210415
  Receipt Date: 20210415
  Transmission Date: 20210717
  Serious: Yes (Other)
  Sender: FDA-Public Use
  Company Number: US-PROCTER+GAMBLE-PH21002281

PATIENT

DRUGS (1)
  1. VSINEXSINUSNASALSALINELONGACTINGSTRENGTHSPRNOFLAVORSCENTPUMPBTL5OZ [Suspect]
     Active Substance: SODIUM CHLORIDE
     Dosage: UNK, USE THIS FOR WHIPPETS
     Route: 055

REACTIONS (1)
  - Drug abuse [Not Recovered/Not Resolved]
